FAERS Safety Report 13830858 (Version 1)
Quarter: 2017Q3

REPORT INFORMATION
  Report Type: Spontaneous
  Country: US (occurrence: US)
  Receive Date: 20170803
  Receipt Date: 20170803
  Transmission Date: 20171127
  Serious: Yes (Other)
  Sender: FDA-Public Use
  Company Number: US-JNJFOC-20170800218

PATIENT
  Sex: Male

DRUGS (1)
  1. TOPAMAX [Suspect]
     Active Substance: TOPIRAMATE
     Indication: PRODUCT USED FOR UNKNOWN INDICATION
     Route: 048

REACTIONS (8)
  - Abdominal pain [Unknown]
  - Headache [Unknown]
  - Fall [Unknown]
  - Balance disorder [Unknown]
  - Drug intolerance [Unknown]
  - Muscular weakness [Unknown]
  - Flushing [Unknown]
  - Multiple sclerosis relapse [Unknown]
